FAERS Safety Report 16255470 (Version 1)
Quarter: 2019Q2

REPORT INFORMATION
  Report Type: Spontaneous
  Country: US (occurrence: US)
  Receive Date: 20190430
  Receipt Date: 20190430
  Transmission Date: 20190711
  Serious: Yes (Hospitalization, Other)
  Sender: FDA-Public Use
  Company Number: US-ALEMBIC PHARMACUETICALS LIMITED-2019SCAL000253

PATIENT

DRUGS (1)
  1. LOSARTAN POTASSIUM AND HYDROCHLOROTHAIZIDE [Suspect]
     Active Substance: HYDROCHLOROTHIAZIDE\LOSARTAN POTASSIUM
     Indication: HYPERTENSION

REACTIONS (8)
  - Eye swelling [Recovered/Resolved]
  - Rash maculo-papular [Recovered/Resolved]
  - Impetigo [Recovered/Resolved]
  - Acute generalised exanthematous pustulosis [Recovered/Resolved]
  - Rash pruritic [Recovered/Resolved]
  - Skin exfoliation [Recovering/Resolving]
  - Rash erythematous [Recovered/Resolved]
  - Rash pustular [Recovered/Resolved]
